FAERS Safety Report 8780917 (Version 7)
Quarter: 2016Q4

REPORT INFORMATION
  Report Type: Spontaneous
  Country: ES (occurrence: ES)
  Receive Date: 20120913
  Receipt Date: 20161208
  Transmission Date: 20170207
  Serious: Yes (Death, Hospitalization, Other)
  Sender: FDA-Public Use
  Company Number: ES-PFIZER INC-2012077260

PATIENT
  Age: 71 Year
  Sex: Male

DRUGS (14)
  1. OMEPRAZOLE. [Concomitant]
     Active Substance: OMEPRAZOLE
     Dosage: 1/24 HOURS; OMEPRAZOLE 20
     Dates: start: 20021003
  2. TRANGOREX [Suspect]
     Active Substance: AMIODARONE HYDROCHLORIDE
     Dosage: UNK
     Route: 042
     Dates: start: 20020902
  3. AXURA [Concomitant]
     Active Substance: MEMANTINE HYDROCHLORIDE
     Dosage: 20 MG, DAILY
     Dates: start: 2010
  4. METFORMIN [Concomitant]
     Active Substance: METFORMIN HYDROCHLORIDE
     Dosage: 850 MG, DAILY
  5. TRANGOREX [Suspect]
     Active Substance: AMIODARONE HYDROCHLORIDE
     Indication: ARRHYTHMIA
     Dosage: UNK
     Route: 048
     Dates: start: 20020902
  6. SINTROM [Concomitant]
     Active Substance: ACENOCOUMAROL
     Dosage: 4 MG:/DAY, DEPENDING ON THE CHECKS, (DOSING MIGHT CHANGE)
     Dates: start: 20021003
  7. ADIRO [Concomitant]
     Active Substance: ASPIRIN
     Dosage: 100
     Dates: start: 20020827
  8. ENALAPRIL [Concomitant]
     Active Substance: ENALAPRIL
     Dosage: 5 MG, DAILY
  9. HALOPERIDOL. [Concomitant]
     Active Substance: HALOPERIDOL
     Dosage: 1 AMPOULE OF AGITATION
     Dates: start: 20021003
  10. TRANGOREX [Suspect]
     Active Substance: AMIODARONE HYDROCHLORIDE
     Indication: ARRHYTHMIA
     Dosage: UNK
     Route: 042
     Dates: start: 20020816, end: 20020816
  11. CRESTOR [Concomitant]
     Active Substance: ROSUVASTATIN CALCIUM
     Dosage: 10 MG, DAILY
  12. EUTIROX [Concomitant]
     Active Substance: LEVOTHYROXINE SODIUM
     Dosage: 50 MCG, UNK
  13. TRANGOREX [Suspect]
     Active Substance: AMIODARONE HYDROCHLORIDE
     Dosage: 1/24 HOURS (NO INTAKE ON SATURDAYS AND SUNDAYS)
     Route: 048
     Dates: start: 20021003
  14. IMIPENEM [Concomitant]
     Active Substance: IMIPENEM
     Dosage: 1 G/ 12 HOURS; TREATMENT DURING 21 DAYS
     Dates: start: 20021003

REACTIONS (31)
  - Bradycardia [Unknown]
  - Bronchial disorder [Not Recovered/Not Resolved]
  - Lung neoplasm malignant [Unknown]
  - Erectile dysfunction [Not Recovered/Not Resolved]
  - Death [Fatal]
  - Mental impairment [Not Recovered/Not Resolved]
  - Oliguria [Unknown]
  - Agitation [Not Recovered/Not Resolved]
  - Respiratory tract infection [Unknown]
  - Metabolic encephalopathy [Not Recovered/Not Resolved]
  - Leukocytosis [Unknown]
  - Eye disorder [Not Recovered/Not Resolved]
  - Renal failure [Not Recovered/Not Resolved]
  - Pancreatitis necrotising [Unknown]
  - Disorientation [Unknown]
  - Dementia [Not Recovered/Not Resolved]
  - Drug intolerance [Unknown]
  - Appendicitis perforated [Not Recovered/Not Resolved]
  - Jaundice [Not Recovered/Not Resolved]
  - Cholestasis [Unknown]
  - Blood triglycerides increased [Unknown]
  - Overdose [Unknown]
  - Cardiogenic shock [Unknown]
  - Blood creatinine increased [Unknown]
  - Amnesia [Not Recovered/Not Resolved]
  - Subdural haematoma [Not Recovered/Not Resolved]
  - Tachyarrhythmia [Unknown]
  - Pericardial effusion [Unknown]
  - Tachypnoea [Unknown]
  - Pancreatitis acute [Not Recovered/Not Resolved]
  - Dementia Alzheimer^s type [Unknown]

NARRATIVE: CASE EVENT DATE: 200209
